FAERS Safety Report 9793352 (Version 1)
Quarter: 2014Q1

REPORT INFORMATION
  Report Type: Spontaneous
  Country: US (occurrence: US)
  Receive Date: 20140102
  Receipt Date: 20140102
  Transmission Date: 20141002
  Serious: Yes (Other)
  Sender: FDA-Public Use
  Company Number: US-PFIZER INC-2013374458

PATIENT
  Age: 80 Year
  Sex: 0

DRUGS (3)
  1. LYRICA [Suspect]
     Dosage: 40 MG, UNK
  2. OXYCODONE HYDROCHLORIDE [Suspect]
     Dosage: UNK
  3. OXYCONTIN [Suspect]
     Dosage: UNK

REACTIONS (4)
  - Type 2 diabetes mellitus [Unknown]
  - Cardiac disorder [Unknown]
  - Alopecia [Unknown]
  - Drug ineffective [Unknown]
